FAERS Safety Report 16540250 (Version 2)
Quarter: 2019Q3

REPORT INFORMATION
  Report Type: Spontaneous
  Country: US (occurrence: US)
  Receive Date: 20190708
  Receipt Date: 20190708
  Transmission Date: 20191004
  Serious: Yes (Other)
  Sender: FDA-Public Use
  Company Number: PHHY2019US148659

PATIENT
  Age: 68 Year
  Sex: Female

DRUGS (2)
  1. TIMOLOL. [Suspect]
     Active Substance: TIMOLOL
     Indication: OPEN ANGLE GLAUCOMA
     Route: 047
  2. TRAVOPROST. [Suspect]
     Active Substance: TRAVOPROST
     Indication: OPEN ANGLE GLAUCOMA
     Route: 047

REACTIONS (10)
  - Endocrine ophthalmopathy [Recovering/Resolving]
  - Conjunctival hyperaemia [Recovered/Resolved]
  - Concomitant disease aggravated [Recovering/Resolving]
  - Exophthalmos [Unknown]
  - Eye pain [Recovered/Resolved]
  - Eye inflammation [Recovering/Resolving]
  - Eye oedema [Recovered/Resolved]
  - Punctate keratitis [Unknown]
  - Ocular hyperaemia [Recovering/Resolving]
  - Photosensitivity reaction [Recovered/Resolved]
